FAERS Safety Report 6400542-3 (Version None)
Quarter: 2009Q4

REPORT INFORMATION
  Report Type: 
  Country: None (occurrence: None)
  Receive Date: 20091013
  Receipt Date: 20091013
  Transmission Date: 20100525
  Serious: Yes (Other)
  Sender: FDA-Public Use
  Company Number: None

PATIENT
  Age: 42 Year
  Sex: Female
  Weight: 106.5953 kg

DRUGS (1)
  1. CYMBALTA [Suspect]
     Indication: DEPRESSION
     Dosage: 120MG DAILY PO
     Route: 048
     Dates: start: 20090301, end: 20091003

REACTIONS (5)
  - ABNORMAL DREAMS [None]
  - AGITATION [None]
  - ANGER [None]
  - CRYING [None]
  - PARAESTHESIA [None]
